FAERS Safety Report 17115810 (Version 1)
Quarter: 2019Q4

REPORT INFORMATION
  Report Type: Spontaneous
  Country: ES (occurrence: ES)
  Receive Date: 20191205
  Receipt Date: 20191205
  Transmission Date: 20200122
  Serious: Yes (Life-Threatening, Hospitalization)
  Sender: FDA-Public Use
  Company Number: ES-MYLANLABS-2019M1119206

PATIENT
  Age: 72 Year
  Sex: Male

DRUGS (2)
  1. ETOPOSIDE. [Suspect]
     Active Substance: ETOPOSIDE
     Indication: PROSTATE CANCER METASTATIC
     Dosage: 140 MG D?A 1,2 Y 3 DE CADA CICLO CADA 21 D?AS
     Route: 042
     Dates: start: 20190513, end: 20190515
  2. CARBOPLATINO [Interacting]
     Active Substance: CARBOPLATIN
     Indication: PROSTATE CANCER METASTATIC
     Dosage: 400 MG CADA 21 D?AS
     Route: 042
     Dates: start: 20190513, end: 20190513

REACTIONS (3)
  - Drug interaction [Unknown]
  - Angina pectoris [Recovered/Resolved with Sequelae]
  - Pancytopenia [Recovered/Resolved with Sequelae]

NARRATIVE: CASE EVENT DATE: 20190523
